FAERS Safety Report 4530209-8 (Version None)
Quarter: 2004Q4

REPORT INFORMATION
  Report Type: 
  Country: None (occurrence: None)
  Receive Date: 20041216
  Receipt Date: 20041216
  Transmission Date: 20050328
  Serious: Yes (Life-Threatening, Hospitalization)
  Sender: FDA-Public Use
  Company Number: None

PATIENT
  Sex: Female
  Weight: 76.2 kg

DRUGS (10)
  1. IMATINIB MESYLATE 100MG CAPSULES, NOVARTIS [Suspect]
     Indication: GLIOBLASTOMA MULTIFORME
     Dosage: 600MG, PO QD X 8 PER 28 DAY CYCLE
     Route: 048
     Dates: start: 20041116, end: 20041123
  2. TEMOZOLOMIDE, SCHERING-PLOUGH [Suspect]
     Indication: GLIOBLASTOMA MULTIFORME
     Dosage: 350MG, PO QD X 5 PER 28 DAY CYCLE
     Route: 048
     Dates: start: 20041119, end: 20041123
  3. LEXAPRO [Concomitant]
  4. PRAVACHOL [Concomitant]
  5. TRICOR [Concomitant]
  6. NORVASC [Concomitant]
  7. DECADRON [Concomitant]
  8. ATENOLOL [Concomitant]
  9. BENAZEPRIL HCL [Concomitant]
  10. CALTRATE [Concomitant]

REACTIONS (5)
  - DIFFICULTY IN WALKING [None]
  - GENERAL PHYSICAL HEALTH DETERIORATION [None]
  - GRAND MAL CONVULSION [None]
  - HYPERGLYCAEMIA [None]
  - MALIGNANT NEOPLASM PROGRESSION [None]
